FAERS Safety Report 5857402-6 (Version None)
Quarter: 2008Q4

REPORT INFORMATION
  Report Type: 
  Country: None (occurrence: None)
  Receive Date: 20080826
  Receipt Date: 20080821
  Transmission Date: 20090506
  Serious: Yes (Death, Hospitalization)
  Sender: FDA-Public Use
  Company Number: JP-BRISTOL-MYERS SQUIBB COMPANY-14221717

PATIENT
  Age: 77 Year
  Sex: Male
  Weight: 60 kg

DRUGS (18)
  1. BRIPLATIN [Suspect]
     Indication: PLEURAL MESOTHELIOMA MALIGNANT
     Route: 041
     Dates: start: 20080424, end: 20080424
  2. ALIMTA [Suspect]
     Indication: PLEURAL MESOTHELIOMA MALIGNANT
     Route: 041
     Dates: start: 20080424, end: 20080424
  3. PAZUCROSS [Suspect]
     Indication: FEBRILE NEUTROPENIA
     Route: 041
     Dates: start: 20080502, end: 20080508
  4. MEROPEN [Suspect]
     Indication: FEBRILE NEUTROPENIA
     Route: 041
     Dates: start: 20080508, end: 20080513
  5. GRAN [Suspect]
     Indication: BONE MARROW FAILURE
     Route: 058
     Dates: start: 20080502, end: 20080505
  6. PANVITAN [Concomitant]
     Route: 048
     Dates: start: 20080417, end: 20080512
  7. CYANOCOBALAMIN [Concomitant]
     Route: 030
     Dates: start: 20080417, end: 20080417
  8. AMARYL [Concomitant]
     Route: 048
     Dates: end: 20080501
  9. BASEN [Concomitant]
     Route: 048
     Dates: end: 20080501
  10. CELTECT [Concomitant]
     Route: 048
     Dates: end: 20080501
  11. BISOLVON [Concomitant]
     Route: 048
     Dates: end: 20080501
  12. OXYCONTIN [Concomitant]
     Route: 048
     Dates: start: 20080422, end: 20080427
  13. MAGNESIUM OXIDE [Concomitant]
     Route: 048
     Dates: start: 20080422, end: 20080501
  14. NOVAMIN [Concomitant]
     Route: 048
     Dates: start: 20080422, end: 20080501
  15. PRIMPERAN INJ [Concomitant]
     Route: 048
     Dates: start: 20080424, end: 20080428
  16. DEXAMETHASONE SODIUM PHOSPHATE [Concomitant]
     Route: 041
     Dates: start: 20080424, end: 20080425
  17. DECADRON SRC [Concomitant]
     Route: 048
     Dates: start: 20080426, end: 20080428
  18. NASEA [Concomitant]
     Route: 041
     Dates: start: 20080424, end: 20080425

REACTIONS (12)
  - BLOOD ALKALINE PHOSPHATASE INCREASED [None]
  - BLOOD BILIRUBIN INCREASED [None]
  - BLOOD LACTATE DEHYDROGENASE INCREASED [None]
  - BONE MARROW FAILURE [None]
  - FEBRILE NEUTROPENIA [None]
  - INTERSTITIAL LUNG DISEASE [None]
  - LIVER DISORDER [None]
  - MALIGNANT NEOPLASM PROGRESSION [None]
  - MULTI-ORGAN FAILURE [None]
  - PLATELET COUNT DECREASED [None]
  - RENAL IMPAIRMENT [None]
  - RESPIRATORY FAILURE [None]
